FAERS Safety Report 11969298 (Version 1)
Quarter: 2016Q1

REPORT INFORMATION
  Report Type: Spontaneous
  Country: US (occurrence: None)
  Receive Date: 20160119
  Receipt Date: 20160119
  Transmission Date: 20160526
  Serious: Yes (Other)
  Sender: FDA-Public Use
  Company Number: 2015-US-007006

PATIENT
  Age: 18 Year
  Sex: Female

DRUGS (3)
  1. ERWINAZE [Suspect]
     Active Substance: ASPARAGINASE ERWINIA CHRYSANTHEMI
     Indication: B-CELL TYPE ACUTE LEUKAEMIA
     Route: 042
     Dates: start: 20150215, end: 20150215
  2. MERCAPTOPURINE. [Concomitant]
     Active Substance: MERCAPTOPURINE
  3. DASATINIB [Concomitant]
     Active Substance: DASATINIB

REACTIONS (1)
  - Pancreatitis acute [None]
